FAERS Safety Report 25250880 (Version 2)
Quarter: 2025Q2

REPORT INFORMATION
  Report Type: Spontaneous
  Country: US (occurrence: US)
  Receive Date: 20250429
  Receipt Date: 20250526
  Transmission Date: 20250717
  Serious: No
  Sender: IPSEN BIOPHARMACEUTICALS, INC.
  Company Number: US-IPSEN Group, Research and Development-2025-09309

PATIENT
  Sex: Female
  Weight: 70.8 kg

DRUGS (8)
  1. IQIRVO [Suspect]
     Active Substance: ELAFIBRANOR
     Indication: Primary biliary cholangitis
     Route: 048
  2. ALKA-SELTZER PLUS-D [Concomitant]
  3. CORTISONE [Concomitant]
     Active Substance: CORTISONE
  4. VITAMIN D3 [Concomitant]
     Active Substance: CHOLECALCIFEROL
  5. POTASSIUM CITRATE [Concomitant]
     Active Substance: POTASSIUM CITRATE
  6. VITAMIN C [Concomitant]
     Active Substance: ASCORBIC ACID
  7. MINERALS\VITAMINS [Concomitant]
     Active Substance: MINERALS\VITAMINS
  8. URSODIOL [Concomitant]
     Active Substance: URSODIOL

REACTIONS (3)
  - Ear pain [Unknown]
  - Throat irritation [Unknown]
  - Upper-airway cough syndrome [Unknown]
